FAERS Safety Report 21174268 (Version 2)
Quarter: 2022Q3

REPORT INFORMATION
  Report Type: Spontaneous
  Country: JP (occurrence: JP)
  Receive Date: 20220804
  Receipt Date: 20220830
  Transmission Date: 20221026
  Serious: Yes (Other)
  Sender: FDA-Public Use
  Company Number: JP-BIOGEN-2022BI01144486

PATIENT
  Age: 46 Year
  Sex: Female
  Weight: 53.3 kg

DRUGS (1)
  1. TYSABRI [Suspect]
     Active Substance: NATALIZUMAB
     Indication: Relapsing-remitting multiple sclerosis
     Route: 050
     Dates: start: 20180306

REACTIONS (1)
  - Uterine leiomyosarcoma [Unknown]

NARRATIVE: CASE EVENT DATE: 20210101
